FAERS Safety Report 7039205-2 (Version None)
Quarter: 2010Q4

REPORT INFORMATION
  Report Type: 
  Country: None (occurrence: None)
  Receive Date: 20101007
  Receipt Date: 20101007
  Transmission Date: 20110411
  Serious: No
  Sender: FDA-Public Use
  Company Number: None

PATIENT
  Age: 95 Year
  Sex: Female
  Weight: 56.246 kg

DRUGS (1)
  1. LEVAQUIN [Suspect]
     Indication: RESPIRATORY TRACT INFECTION
     Dosage: ONE TABLET DAILY PO
     Route: 048
     Dates: start: 20100927, end: 20101002

REACTIONS (2)
  - BALANCE DISORDER [None]
  - TREMOR [None]
